FAERS Safety Report 4592069-9 (Version None)
Quarter: 2005Q1

REPORT INFORMATION
  Report Type: 
  Country: None (occurrence: None)
  Receive Date: 20050125
  Receipt Date: 20040924
  Transmission Date: 20050727
  Serious: No
  Sender: FDA-Public Use
  Company Number: USA040464127

PATIENT
  Age: 73 Year
  Sex: Female
  Weight: 53 kg

DRUGS (2)
  1. FORTEO [Suspect]
     Indication: OSTEOPOROSIS
     Dosage: 20 UG/1 DAY
     Dates: start: 20040220
  2. TYLENOL        /USA/(PARACETAMOL) [Concomitant]

REACTIONS (4)
  - DENTAL EXAMINATION ABNORMAL [None]
  - DENTAL OPERATION [None]
  - INJECTION SITE HAEMORRHAGE [None]
  - TOOTH EXTRACTION [None]
